FAERS Safety Report 8616551 (Version 5)
Quarter: 2014Q1

REPORT INFORMATION
  Report Type: Spontaneous
  Country: US (occurrence: US)
  Receive Date: 20120615
  Receipt Date: 20140103
  Transmission Date: 20141002
  Serious: Yes (Hospitalization, Disabling, Other)
  Sender: FDA-Public Use
  Company Number: US-ASTRAZENECA-2012SE35671

PATIENT
  Age: 63 Year
  Sex: Female
  Weight: 127 kg

DRUGS (38)
  1. NEXIUM [Suspect]
     Indication: DYSPEPSIA
     Route: 048
     Dates: start: 1991, end: 1992
  2. NEXIUM [Suspect]
     Indication: GASTROOESOPHAGEAL REFLUX DISEASE
     Route: 048
     Dates: start: 1991, end: 1992
  3. NEXIUM [Suspect]
     Indication: DYSPEPSIA
     Route: 048
     Dates: start: 1997, end: 2010
  4. NEXIUM [Suspect]
     Indication: GASTROOESOPHAGEAL REFLUX DISEASE
     Route: 048
     Dates: start: 1997, end: 2010
  5. NEXIUM [Suspect]
     Indication: DYSPEPSIA
     Dosage: ONE TIME A DAY
     Route: 048
     Dates: start: 2000, end: 2001
  6. NEXIUM [Suspect]
     Indication: GASTROOESOPHAGEAL REFLUX DISEASE
     Dosage: ONE TIME A DAY
     Route: 048
     Dates: start: 2000, end: 2001
  7. NEXIUM [Suspect]
     Indication: DYSPEPSIA
     Dosage: ONE TIME A DAY
     Route: 048
     Dates: start: 2008, end: 2010
  8. NEXIUM [Suspect]
     Indication: GASTROOESOPHAGEAL REFLUX DISEASE
     Dosage: ONE TIME A DAY
     Route: 048
     Dates: start: 2008, end: 2010
  9. NEXIUM [Suspect]
     Indication: DYSPEPSIA
     Route: 048
     Dates: start: 2008, end: 2013
  10. NEXIUM [Suspect]
     Indication: GASTROOESOPHAGEAL REFLUX DISEASE
     Route: 048
     Dates: start: 2008, end: 2013
  11. NEXIUM [Suspect]
     Indication: DYSPEPSIA
     Route: 048
     Dates: start: 2007, end: 2012
  12. NEXIUM [Suspect]
     Indication: GASTROOESOPHAGEAL REFLUX DISEASE
     Route: 048
     Dates: start: 2007, end: 2012
  13. NEXIUM [Suspect]
     Indication: DYSPEPSIA
     Route: 048
     Dates: start: 20070314
  14. NEXIUM [Suspect]
     Indication: GASTROOESOPHAGEAL REFLUX DISEASE
     Route: 048
     Dates: start: 20070314
  15. OMEPRAZOLE [Suspect]
     Indication: GASTROOESOPHAGEAL REFLUX DISEASE
     Route: 048
     Dates: start: 20111220
  16. OMEPRAZOLE [Suspect]
     Indication: GASTROOESOPHAGEAL REFLUX DISEASE
     Route: 048
     Dates: start: 2011, end: 2013
  17. PRILOSEC OTC [Suspect]
     Route: 048
  18. PREVACID [Suspect]
     Indication: GASTROOESOPHAGEAL REFLUX DISEASE
     Route: 065
  19. ZANTAC [Concomitant]
     Indication: DYSPEPSIA
  20. ESTRADA [Concomitant]
  21. PEPTO BISMOL [Concomitant]
     Dosage: AS NEEDED
  22. ALKA SELTZER [Concomitant]
     Dosage: AS NEEDED
  23. GAVISCON [Concomitant]
  24. ROLAIDS [Concomitant]
  25. TUMS/CALCIUM [Concomitant]
     Dosage: AS NEEDED
  26. MILK OF MAGNESIA [Concomitant]
  27. NEOXICAM [Concomitant]
  28. POTASSIUM [Concomitant]
  29. LEVOTHYROXINE [Concomitant]
  30. METOCLOPRAMIDE [Concomitant]
     Dates: start: 20070314
  31. FLUCONAZOLE [Concomitant]
     Dates: start: 20070907
  32. GABAPENTIN [Concomitant]
     Dates: start: 20070314
  33. PEPCID [Concomitant]
  34. SULINDAC [Concomitant]
  35. LISINOPRIL [Concomitant]
     Indication: BLOOD PRESSURE ABNORMAL
  36. EFFEXOR [Concomitant]
     Indication: NERVOUS SYSTEM DISORDER
  37. EFFEXOR [Concomitant]
     Indication: ANXIETY
  38. EXCEDRIN [Concomitant]

REACTIONS (42)
  - Intervertebral disc disorder [Unknown]
  - Intestinal obstruction [Unknown]
  - Nervous system disorder [Unknown]
  - Spinal disorder [Unknown]
  - Limb injury [Unknown]
  - Osteoarthritis [Unknown]
  - Kidney infection [Unknown]
  - Back pain [Unknown]
  - Hepatitis [Unknown]
  - Arthralgia [Unknown]
  - Liver injury [Unknown]
  - Osteoporosis [Unknown]
  - Osteopenia [Unknown]
  - Bone disorder [Unknown]
  - Multiple fractures [Unknown]
  - Angina pectoris [Unknown]
  - Ankylosing spondylitis [Unknown]
  - Arthritis [Unknown]
  - Cardiovascular disorder [Unknown]
  - Type 2 diabetes mellitus [Unknown]
  - Peripheral arterial occlusive disease [Unknown]
  - Rheumatoid arthritis [Unknown]
  - Scoliosis [Unknown]
  - Calcium deficiency [Unknown]
  - Hypothyroidism [Unknown]
  - Hand fracture [Unknown]
  - Chromaturia [Unknown]
  - Muscle spasms [Unknown]
  - Joint swelling [Unknown]
  - Gastric disorder [Unknown]
  - Anxiety [Unknown]
  - Intervertebral disc degeneration [Unknown]
  - Spondylolisthesis [Unknown]
  - Spinal osteoarthritis [Unknown]
  - Lumbar spinal stenosis [Unknown]
  - Intervertebral disc protrusion [Unknown]
  - Facial bones fracture [Unknown]
  - Diarrhoea [Unknown]
  - Depression [Unknown]
  - Pruritus [Unknown]
  - Myalgia [Unknown]
  - Alopecia [Unknown]
